FAERS Safety Report 9302107 (Version 1)
Quarter: 2013Q2

REPORT INFORMATION
  Report Type: Spontaneous
  Country: BE (occurrence: BE)
  Receive Date: 20130521
  Receipt Date: 20130521
  Transmission Date: 20140414
  Serious: Yes (Hospitalization)
  Sender: FDA-Public Use
  Company Number: BE-B.I. PHARMACEUTICALS,INC./RIDGEFIELD-2013-BL-00241BL

PATIENT
  Age: 71 Year
  Sex: Male

DRUGS (4)
  1. PRADAXA [Suspect]
     Indication: ATRIAL FIBRILLATION
     Dosage: 300 MG
     Dates: start: 201208
  2. PERINDOPRIL [Concomitant]
  3. CORDARONE [Concomitant]
  4. COMBODART [Concomitant]

REACTIONS (2)
  - Ischaemic stroke [Unknown]
  - Brain stem infarction [Unknown]
